FAERS Safety Report 21536539 (Version 1)
Quarter: 2022Q4

REPORT INFORMATION
  Report Type: Spontaneous
  Country: US (occurrence: None)
  Receive Date: 20221031
  Receipt Date: 20221031
  Transmission Date: 20230113
  Serious: Yes (Hospitalization)
  Sender: FDA-Public Use
  Company Number: None

PATIENT

DRUGS (1)
  1. LEVETIRACETAM [Suspect]
     Active Substance: LEVETIRACETAM

REACTIONS (7)
  - Fall [None]
  - Confusional state [None]
  - Skin laceration [None]
  - Contusion [None]
  - Skin laceration [None]
  - Hip fracture [None]
  - Rib fracture [None]

NARRATIVE: CASE EVENT DATE: 20210927
